FAERS Safety Report 22067152 (Version 1)
Quarter: 2023Q1

REPORT INFORMATION
  Report Type: Spontaneous
  Country: JP (occurrence: None)
  Receive Date: 20230307
  Receipt Date: 20230307
  Transmission Date: 20230418
  Serious: Yes (Hospitalization)
  Sender: FDA-Public Use
  Company Number: JP-Merck Healthcare KGaA-9377836

PATIENT
  Age: 74 Year
  Sex: Male
  Weight: 82 kg

DRUGS (14)
  1. METGLUCO [Suspect]
     Active Substance: METFORMIN HYDROCHLORIDE
     Indication: Type 2 diabetes mellitus
     Dosage: THERAPY START DATE: -FEB-2016
     Route: 048
     Dates: end: 201812
  2. METGLUCO [Suspect]
     Active Substance: METFORMIN HYDROCHLORIDE
     Dosage: THERAPY START DATE:-DEC-2018
     Route: 048
     Dates: end: 20200622
  3. METGLUCO [Suspect]
     Active Substance: METFORMIN HYDROCHLORIDE
     Dosage: THERAPY START DATE: 22-JUN-2020
     Route: 048
     Dates: end: 20200801
  4. METGLUCO [Suspect]
     Active Substance: METFORMIN HYDROCHLORIDE
     Dosage: THERAPY START DATE:01-AUG-2020
     Route: 048
     Dates: end: 20201002
  5. JARDIANCE [Suspect]
     Active Substance: EMPAGLIFLOZIN
     Indication: Type 2 diabetes mellitus
     Dosage: THERAPY START DATE:29-OCT-2019
     Route: 048
     Dates: end: 20201002
  6. XULTOPHY 100/3.6 [Suspect]
     Active Substance: INSULIN DEGLUDEC\LIRAGLUTIDE
     Indication: Type 2 diabetes mellitus
     Dosage: THERAPY START DATE: 24-DEC-2019?50 (UNIT UNSPECIFIED)
     Route: 058
     Dates: end: 20200622
  7. XULTOPHY 100/3.6 [Suspect]
     Active Substance: INSULIN DEGLUDEC\LIRAGLUTIDE
     Dosage: THERAPY START DATE: 22-JUN-2020?30 (UNIT UNSPECIFIED)
     Route: 058
     Dates: end: 20200801
  8. XULTOPHY 100/3.6 [Suspect]
     Active Substance: INSULIN DEGLUDEC\LIRAGLUTIDE
     Dosage: THERAPY START DATE: 01-AUG-2020?20 (UNIT UNSPECIFIED)
     Route: 058
     Dates: end: 20201002
  9. GLIMEPIRIDE [Concomitant]
     Active Substance: GLIMEPIRIDE
     Indication: Type 2 diabetes mellitus
  10. SITAGLIPTIN [Concomitant]
     Active Substance: SITAGLIPTIN
     Indication: Type 2 diabetes mellitus
  11. LINAGLIPTIN [Concomitant]
     Active Substance: LINAGLIPTIN
     Indication: Type 2 diabetes mellitus
  12. MIGLITOL [Concomitant]
     Active Substance: MIGLITOL
     Indication: Type 2 diabetes mellitus
  13. DULAGLUTIDE [Concomitant]
     Active Substance: DULAGLUTIDE
     Indication: Type 2 diabetes mellitus
  14. LUSEOGLIFLOZIN [Concomitant]
     Active Substance: LUSEOGLIFLOZIN
     Indication: Type 2 diabetes mellitus

REACTIONS (2)
  - Glycosylated haemoglobin increased [Recovering/Resolving]
  - Skin ulcer [Recovered/Resolved]

NARRATIVE: CASE EVENT DATE: 20180201
